FAERS Safety Report 6852593-2 (Version None)
Quarter: 2010Q3

REPORT INFORMATION
  Report Type: 
  Country: None (occurrence: None)
  Receive Date: 20100717
  Receipt Date: 20071119
  Transmission Date: 20110219
  Serious: No
  Sender: FDA-Public Use
  Company Number: US-PFIZER INC-2007099298

PATIENT
  Sex: Female
  Weight: 72.6 kg

DRUGS (4)
  1. CHANTIX [Suspect]
     Indication: SMOKING CESSATION THERAPY
     Route: 048
     Dates: start: 20071101
  2. DESMOPRESSIN ACETATE [Concomitant]
     Dosage: 2 TABLETS
  3. EFFEXOR [Concomitant]
  4. LEXAPRO [Concomitant]

REACTIONS (4)
  - ABNORMAL DREAMS [None]
  - DYSGEUSIA [None]
  - FATIGUE [None]
  - HEADACHE [None]
